FAERS Safety Report 5046489-9 (Version None)
Quarter: 2006Q3

REPORT INFORMATION
  Report Type: 
  Country: None (occurrence: None)
  Receive Date: 20060707
  Receipt Date: 20060707
  Transmission Date: 20061208
  Serious: No
  Sender: FDA-Public Use
  Company Number: None

PATIENT
  Age: 34 Year
  Sex: Female
  Weight: 55.7924 kg

DRUGS (1)
  1. TRUVADA [Suspect]
     Indication: HIV INFECTION
     Dosage: 1 TAB    DAILY   PO
     Route: 048
     Dates: start: 20060202, end: 20060615

REACTIONS (4)
  - IMPAIRED GASTRIC EMPTYING [None]
  - NAUSEA [None]
  - RENAL FAILURE [None]
  - VOMITING [None]
